FAERS Safety Report 5624203-3 (Version None)
Quarter: 2008Q1

REPORT INFORMATION
  Report Type: 
  Country: None (occurrence: None)
  Receive Date: 20080208
  Receipt Date: 20080131
  Transmission Date: 20080703
  Serious: Yes (Hospitalization)
  Sender: FDA-Public Use
  Company Number: MPS1-1000014

PATIENT
  Age: 7 Year
  Sex: Female
  Weight: 16 kg

DRUGS (4)
  1. ALDURAZYME [Suspect]
     Indication: MUCOPOLYSACCHARIDOSIS I
     Dosage: 8.7 MG, 1X/W, INTRAVENOUS
     Route: 042
     Dates: start: 20030821
  2. BENADRYL [Concomitant]
  3. ALBUTEROL [Concomitant]
  4. MOTRIN [Concomitant]

REACTIONS (6)
  - BACTERIAL INFECTION [None]
  - HEART RATE INCREASED [None]
  - INFUSION RELATED REACTION [None]
  - PYREXIA [None]
  - RESPIRATORY ARREST [None]
  - RESPIRATORY DISTRESS [None]
